FAERS Safety Report 19990588 (Version 1)
Quarter: 2021Q4

REPORT INFORMATION
  Report Type: Spontaneous
  Country: US (occurrence: US)
  Receive Date: 20211024
  Receipt Date: 20211024
  Transmission Date: 20220303
  Serious: Yes (Hospitalization)
  Sender: FDA-Public Use
  Company Number: None

PATIENT
  Age: 56 Year
  Sex: Female
  Weight: 50.4 kg

DRUGS (1)
  1. TRAMADOL HYDROCHLORIDE [Suspect]
     Active Substance: TRAMADOL HYDROCHLORIDE
     Indication: Pain
     Dosage: ?          QUANTITY:1 TABLET(S);
     Route: 048
     Dates: start: 20211022, end: 20211022

REACTIONS (2)
  - Abdominal rigidity [None]
  - Abdominal pain upper [None]

NARRATIVE: CASE EVENT DATE: 20211022
